FAERS Safety Report 17451373 (Version 17)
Quarter: 2023Q2

REPORT INFORMATION
  Report Type: Spontaneous
  Country: US (occurrence: US)
  Receive Date: 20200224
  Receipt Date: 20230613
  Transmission Date: 20230722
  Serious: Yes (Other)
  Sender: FDA-Public Use
  Company Number: US-PFIZER INC-2018452902

PATIENT
  Age: 69 Year
  Sex: Female

DRUGS (2)
  1. XELJANZ XR [Suspect]
     Active Substance: TOFACITINIB CITRATE
     Indication: Rheumatoid arthritis
     Dosage: 11 MG, 1X/DAY
     Route: 048
     Dates: end: 202001
  2. XELJANZ XR [Suspect]
     Active Substance: TOFACITINIB CITRATE
     Dosage: 11 MG, 1X/DAY
     Route: 048

REACTIONS (16)
  - Rheumatoid arthritis [Unknown]
  - Poor peripheral circulation [Unknown]
  - Intentional product misuse [Unknown]
  - Arthralgia [Recovering/Resolving]
  - Bone swelling [Unknown]
  - Gait disturbance [Unknown]
  - Pain [Unknown]
  - Pain in extremity [Unknown]
  - Arthropathy [Unknown]
  - Peripheral swelling [Unknown]
  - Arthropathy [Unknown]
  - Fatigue [Unknown]
  - Illness [Unknown]
  - Mydriasis [Unknown]
  - Joint swelling [Unknown]
  - Joint injury [Unknown]
